FAERS Safety Report 6051000-X (Version None)
Quarter: 2009Q1

REPORT INFORMATION
  Report Type: 
  Country: None (occurrence: None)
  Receive Date: 20090126
  Receipt Date: 20081112
  Transmission Date: 20090719
  Serious: No
  Sender: FDA-Public Use
  Company Number: US-TYCO HEALTHCARE/MALLINCKRODT-T200801956

PATIENT
  Sex: Female

DRUGS (1)
  1. OPTIRAY 300 [Suspect]
     Indication: COMPUTERISED TOMOGRAM
     Dosage: 100 ML, SINGLE
     Route: 042
     Dates: start: 20081107, end: 20081107

REACTIONS (5)
  - CHEST DISCOMFORT [None]
  - CHILLS [None]
  - DYSPHAGIA [None]
  - DYSPNOEA [None]
  - TREMOR [None]
